FAERS Safety Report 21381914 (Version 1)
Quarter: 2022Q3

REPORT INFORMATION
  Report Type: Spontaneous
  Country: US (occurrence: None)
  Receive Date: 20220926
  Receipt Date: 20220926
  Transmission Date: 20221027
  Serious: No
  Sender: FDA-Public Use
  Company Number: None

PATIENT
  Age: 61 Year
  Sex: Female
  Weight: 38 kg

DRUGS (2)
  1. ENTYVIO [Suspect]
     Active Substance: VEDOLIZUMAB
     Indication: Colitis ulcerative
     Dosage: OTHER FREQUENCY : WEEKS 0, 2, 6 THEN;?
     Route: 041
  2. ENTYVIO [Suspect]
     Active Substance: VEDOLIZUMAB
     Indication: Rectal haemorrhage

REACTIONS (8)
  - Abdominal pain [None]
  - Diarrhoea [None]
  - Bone pain [None]
  - Dyspnoea [None]
  - Oxygen saturation decreased [None]
  - Haematochezia [None]
  - Haemorrhage [None]
  - Pain [None]

NARRATIVE: CASE EVENT DATE: 20220913
